FAERS Safety Report 5229390-7 (Version None)
Quarter: 2007Q1

REPORT INFORMATION
  Report Type: 
  Country: None (occurrence: None)
  Receive Date: 20061201
  Receipt Date: 20060911
  Transmission Date: 20070707
  Serious: No
  Sender: FDA-Public Use
  Company Number: 2006PV021066

PATIENT
  Age: 62 Year
  Sex: Female
  Weight: 130.6359 kg

DRUGS (4)
  1. BYETTA [Suspect]
     Indication: DIABETES MELLITUS NON-INSULIN-DEPENDENT
     Dosage: 5 MCG;BID;SC
     Route: 058
     Dates: start: 20060831
  2. TRAZODONE HCL [Suspect]
     Indication: SLEEP DISORDER
     Dosage: HS;SC
     Route: 058
     Dates: start: 20060831, end: 20060901
  3. METFORMIN HCL [Concomitant]
  4. PREVACID [Concomitant]

REACTIONS (4)
  - CONFUSIONAL STATE [None]
  - NAUSEA [None]
  - PAIN IN EXTREMITY [None]
  - WEIGHT DECREASED [None]
